FAERS Safety Report 5220351-0 (Version None)
Quarter: 2006Q4

REPORT INFORMATION
  Report Type: 
  Country: None (occurrence: None)
  Receive Date: 20061201
  Receipt Date: 20060711
  Transmission Date: 20070319
  Serious: No
  Sender: FDA-Public Use
  Company Number: 2006PV017375

PATIENT
  Age: 39 Year
  Sex: Female
  Weight: 93.441 kg

DRUGS (12)
  1. BYETTA [Suspect]
     Indication: DIABETES MELLITUS NON-INSULIN-DEPENDENT
     Dosage: SEE IMAGE
     Route: 058
     Dates: start: 20060101, end: 20060101
  2. BYETTA [Suspect]
     Indication: DIABETES MELLITUS NON-INSULIN-DEPENDENT
     Dosage: SEE IMAGE
     Route: 058
     Dates: start: 20060501
  3. METFORMIN HCL [Concomitant]
  4. COZAAR [Concomitant]
  5. NEXIUM [Concomitant]
  6. ASPIRIN [Concomitant]
  7. LAMICTAL [Concomitant]
  8. AMBIEN CR [Concomitant]
  9. TRICOR [Concomitant]
  10. LEXAPRO [Concomitant]
  11. RETIN-A [Concomitant]
  12. MIGRANAL [Concomitant]

REACTIONS (3)
  - INJECTION SITE PRURITUS [None]
  - RASH PRURITIC [None]
  - STAPHYLOCOCCAL INFECTION [None]
